FAERS Safety Report 6419634-8 (Version None)
Quarter: 2009Q4

REPORT INFORMATION
  Report Type: 
  Country: None (occurrence: None)
  Receive Date: 20091029
  Receipt Date: 20091020
  Transmission Date: 20100525
  Serious: Yes (Death)
  Sender: FDA-Public Use
  Company Number: A0812665A

PATIENT
  Sex: Male
  Weight: 53 kg

DRUGS (4)
  1. LAPATINIB [Suspect]
     Indication: GASTRIC CANCER
     Dosage: 1250MG PER DAY
     Route: 048
  2. CAPECITABINE [Suspect]
     Indication: GASTRIC CANCER
     Dosage: 1700MGM2 TWICE PER DAY
     Route: 048
  3. OXALIPLATIN [Suspect]
     Indication: GASTRIC CANCER
     Dosage: 130MGM2 CYCLIC
     Route: 042
  4. ZOFRAN [Concomitant]
     Dosage: 8MG TWICE PER DAY
     Route: 048
     Dates: start: 20090917

REACTIONS (2)
  - LOSS OF CONSCIOUSNESS [None]
  - SUDDEN DEATH [None]
